FAERS Safety Report 11664730 (Version 1)
Quarter: 2015Q4

REPORT INFORMATION
  Report Type: Spontaneous
  Country: US (occurrence: US)
  Receive Date: 20151027
  Receipt Date: 20151027
  Transmission Date: 20160304
  Serious: No
  Sender: FDA-Public Use
  Company Number: US-ELI_LILLY_AND_COMPANY-US200912000906

PATIENT
  Sex: Female

DRUGS (2)
  1. FORTEO [Suspect]
     Active Substance: TERIPARATIDE
     Dosage: UNK,UNK
     Dates: start: 2009
  2. FORTEO [Suspect]
     Active Substance: TERIPARATIDE
     Dosage: UNK, UNK
     Dates: start: 20091029, end: 2009

REACTIONS (7)
  - Nausea [Unknown]
  - Injection site pain [Recovering/Resolving]
  - Anxiety [Unknown]
  - Dysgeusia [Unknown]
  - Drug dose omission [Recovered/Resolved]
  - Injection site haemorrhage [Recovered/Resolved]
  - Eye movement disorder [Unknown]

NARRATIVE: CASE EVENT DATE: 2009
